FAERS Safety Report 15602071 (Version 1)
Quarter: 2018Q4

REPORT INFORMATION
  Report Type: Spontaneous
  Country: HK (occurrence: HK)
  Receive Date: 20181109
  Receipt Date: 20181109
  Transmission Date: 20190205
  Serious: Yes (Hospitalization)
  Sender: FDA-Public Use
  Company Number: HK-ALLERGAN-1671437US

PATIENT
  Age: 30 Year
  Sex: Female

DRUGS (1)
  1. BOTOX [Suspect]
     Active Substance: ONABOTULINUMTOXINA
     Indication: OFF LABEL USE
     Dosage: 500 UNITS, SINGLE
     Route: 030

REACTIONS (3)
  - Botulism [Recovering/Resolving]
  - Overdose [Unknown]
  - Off label use [Unknown]
